FAERS Safety Report 7221841-1 (Version None)
Quarter: 2011Q1

REPORT INFORMATION
  Report Type: 
  Country: None (occurrence: None)
  Receive Date: 20110112
  Receipt Date: 20110107
  Transmission Date: 20110831
  Serious: Yes (Hospitalization)
  Sender: FDA-Public Use
  Company Number: A0904115A

PATIENT
  Age: 25 Year
  Sex: Female

DRUGS (20)
  1. PEPCID [Concomitant]
  2. VIMPAT [Concomitant]
  3. POLYVINYL ALCOHOL [Concomitant]
  4. MAGNESIUM OXIDE [Concomitant]
  5. LACTOBACILLUS [Concomitant]
  6. LAMOTRIGINE [Suspect]
     Dosage: 50MG TWICE PER DAY
     Route: 048
     Dates: start: 20101220
  7. VANCOMYCIN [Concomitant]
  8. CLONAZEPAM [Concomitant]
  9. EYE DROPS [Concomitant]
  10. ACETAMINOPHEN [Concomitant]
  11. DILAUDID [Concomitant]
  12. ATIVAN [Concomitant]
  13. KEPPRA [Concomitant]
  14. VALIUM [Concomitant]
  15. COLACE [Concomitant]
  16. MORPHINE SULFATE [Concomitant]
  17. UNSPECIFIED MEDICATION [Concomitant]
  18. PHENERGAN [Concomitant]
  19. SYNTHROID [Concomitant]
  20. SEROQUEL [Concomitant]

REACTIONS (3)
  - HYPOTENSION [None]
  - ABNORMAL BEHAVIOUR [None]
  - ALOPECIA [None]
